FAERS Safety Report 9166688 (Version 1)
Quarter: 2013Q1

REPORT INFORMATION
  Report Type: Report from Study
  Country: BR (occurrence: BR)
  Receive Date: 20130315
  Receipt Date: 20130315
  Transmission Date: 20140127
  Serious: Yes (Other)
  Sender: FDA-Public Use
  Company Number: BR-ABBOTT-13P-020-1061284-00

PATIENT
  Sex: Female
  Weight: 81 kg

DRUGS (9)
  1. HUMIRA [Suspect]
     Indication: RHEUMATOID ARTHRITIS
     Route: 058
     Dates: start: 2010
  2. UNSPECIFIED ANESTHESIA [Suspect]
     Indication: CYST REMOVAL
  3. UNKNOWN DRUG [Concomitant]
     Indication: CONSTIPATION PROPHYLAXIS
     Route: 048
  4. PREDNISONE [Concomitant]
     Indication: RHEUMATIC DISORDER
     Route: 048
     Dates: start: 1987
  5. METHOTREXATE [Concomitant]
     Indication: RHEUMATIC DISORDER
     Route: 048
     Dates: start: 2011
  6. METFORMIN [Concomitant]
     Indication: DIABETES MELLITUS
     Dates: start: 2009
  7. UNKNOWN MEDICATION [Concomitant]
     Indication: DIABETES MELLITUS
     Dosage: IN THE MORNING
     Route: 048
     Dates: start: 2009
  8. CAPTOPRIL [Concomitant]
     Indication: HYPERTENSION
     Route: 048
     Dates: start: 1995
  9. CHLOROTHIAZIDE [Concomitant]
     Indication: HYPERTENSION
     Route: 048
     Dates: start: 1995

REACTIONS (6)
  - Cyst [Recovered/Resolved]
  - Injection site pruritus [Recovering/Resolving]
  - Injection site erythema [Recovering/Resolving]
  - Injection site irritation [Recovering/Resolving]
  - Injection site dryness [Recovered/Resolved]
  - Hypoaesthesia oral [Recovering/Resolving]
